FAERS Safety Report 20053498 (Version 2)
Quarter: 2021Q4

REPORT INFORMATION
  Report Type: Spontaneous
  Country: DE (occurrence: None)
  Receive Date: 20211110
  Receipt Date: 20211207
  Transmission Date: 20220303
  Serious: Yes (Other)
  Sender: FDA-Public Use
  Company Number: 2021A794843

PATIENT
  Age: 60 Year
  Sex: Male

DRUGS (1)
  1. ROSUVASTATIN [Suspect]
     Active Substance: ROSUVASTATIN
     Indication: Product used for unknown indication
     Dosage: UNKNOWN
     Route: 065
     Dates: start: 202103

REACTIONS (1)
  - Hyperthyroidism [Recovered/Resolved]

NARRATIVE: CASE EVENT DATE: 20210501
